FAERS Safety Report 9525406 (Version 1)
Quarter: 2013Q3

REPORT INFORMATION
  Report Type: Report from Study
  Country: BR (occurrence: BR)
  Receive Date: 20130916
  Receipt Date: 20130916
  Transmission Date: 20140515
  Serious: Yes (Hospitalization, Other)
  Sender: FDA-Public Use
  Company Number: BR-ROCHE-1273923

PATIENT
  Age: 63 Year
  Sex: Male

DRUGS (3)
  1. OMALIZUMAB [Suspect]
     Indication: ASTHMA
     Route: 065
  2. FORMOTEROL [Suspect]
     Indication: ASTHMA
     Route: 065
  3. BUDESONIDE [Suspect]
     Indication: ASTHMA
     Route: 065

REACTIONS (11)
  - Asthma [Recovering/Resolving]
  - Gastrooesophageal reflux disease [Recovering/Resolving]
  - Erosive oesophagitis [Recovering/Resolving]
  - Pulmonary function test abnormal [Recovering/Resolving]
  - Pulmonary function challenge test abnormal [Recovering/Resolving]
  - Skin test positive [Recovering/Resolving]
  - Diabetes mellitus [Recovering/Resolving]
  - Osteopenia [Recovering/Resolving]
  - Hiatus hernia [Recovering/Resolving]
  - Atopy [Recovering/Resolving]
  - Blood immunoglobulin E increased [Recovering/Resolving]
